FAERS Safety Report 14362653 (Version 1)
Quarter: 2018Q1

REPORT INFORMATION
  Report Type: Spontaneous
  Country: US (occurrence: US)
  Receive Date: 20180105
  Receipt Date: 20180105
  Transmission Date: 20180509
  Serious: Yes (Other)
  Sender: FDA-Public Use
  Company Number: None

PATIENT
  Age: 51 Year
  Sex: Female
  Weight: 67.05 kg

DRUGS (12)
  1. METRONIDAZOLE. [Concomitant]
     Active Substance: METRONIDAZOLE
  2. LORATADINE. [Concomitant]
     Active Substance: LORATADINE
  3. PROBIOTIC [Concomitant]
     Active Substance: PROBIOTICS NOS
  4. UBIQUININE/VITAMIN-E [Concomitant]
  5. ERYTHROMYCIN 5 MG/GM OPHTHALMIC OINTMENT [Suspect]
     Active Substance: ERYTHROMYCIN
     Indication: EYE DISORDER
     Dosage: QUANTITY:1 CM; AT BEDTIME?
     Route: 047
     Dates: start: 20180102, end: 20180104
  6. BUPROPION XL [Concomitant]
     Active Substance: BUPROPION
  7. DULOXETINE. [Concomitant]
     Active Substance: DULOXETINE
  8. VITAMIN B12 WITH FOLATE [Concomitant]
  9. VITAMIN D3 [Concomitant]
     Active Substance: CHOLECALCIFEROL
  10. FLUCONAZOLE. [Concomitant]
     Active Substance: FLUCONAZOLE
  11. MAGNESIUM [Concomitant]
     Active Substance: MAGNESIUM
  12. VITAMIN E [Concomitant]
     Active Substance: .ALPHA.-TOCOPHEROL

REACTIONS (2)
  - Skin disorder [None]
  - Dizziness [None]

NARRATIVE: CASE EVENT DATE: 20180105
